FAERS Safety Report 10640731 (Version 1)
Quarter: 2014Q4

REPORT INFORMATION
  Report Type: Spontaneous
  Country: CH (occurrence: CH)
  Receive Date: 20141209
  Receipt Date: 20141209
  Transmission Date: 20150529
  Serious: Yes (Hospitalization)
  Sender: FDA-Public Use
  Company Number: CH-TEVA-525857ISR

PATIENT
  Age: 86 Year
  Sex: Male

DRUGS (7)
  1. ASPIRIN CARDIO 100 MG [Concomitant]
     Route: 048
  2. COMILORID-MEPHA [Interacting]
     Active Substance: AMILORIDE HYDROCHLORIDE\HYDROCHLOROTHIAZIDE
     Indication: HYPERTENSION
     Dosage: 1 DOSAGE FORMS DAILY; 1 DF = 5 MG AMILORIDE HYDROCHLORIDE AND 50 MG HYDROCHLOROTHIAZIDE
     Route: 048
     Dates: start: 2014, end: 201409
  3. EXFORGE HCT [Interacting]
     Active Substance: AMLODIPINE BESYLATE\HYDROCHLOROTHIAZIDE\VALSARTAN
     Indication: HYPERTENSION
     Dosage: 1 DOSAGE FORMS DAILY; 1 DF = 10 MG AMLODIPINE, 160 MG VALSARTAN AND 25 MG HYDROCHLOROTHIAZIDE
     Route: 048
     Dates: start: 2014
  4. PHYSIOTENS [Concomitant]
     Active Substance: MOXONIDINE
     Route: 065
  5. SOTALOL-MEPHA [Suspect]
     Active Substance: SOTALOL
     Indication: HYPERTENSION
     Dosage: 160 MILLIGRAM DAILY;
     Route: 048
     Dates: start: 2014, end: 201409
  6. PROTAGENT [Concomitant]
     Dosage: DROPS
     Route: 065
  7. DIGOXIN. [Interacting]
     Active Substance: DIGOXIN
     Indication: ATRIAL FIBRILLATION
     Dosage: .5 MILLIGRAM DAILY;
     Route: 048
     Dates: start: 1988, end: 201409

REACTIONS (5)
  - Electrocardiogram abnormal [Recovered/Resolved]
  - Toxicity to various agents [Recovered/Resolved]
  - Bradycardia [Recovered/Resolved]
  - Drug interaction [Recovered/Resolved]
  - Renal impairment [Recovered/Resolved]

NARRATIVE: CASE EVENT DATE: 20140909
